FAERS Safety Report 5716818-9 (Version None)
Quarter: 2008Q2

REPORT INFORMATION
  Report Type: 
  Country: None (occurrence: None)
  Receive Date: 20080424
  Receipt Date: 20070822
  Transmission Date: 20081010
  Serious: No
  Sender: FDA-Public Use
  Company Number: US-BAYER-200712785BWH

PATIENT
  Sex: Male

DRUGS (11)
  1. LEVITRA [Suspect]
     Indication: ERECTILE DYSFUNCTION
     Route: 048
  2. MULTI-VITAMIN AND MINERAL + VITAMIN C [Concomitant]
  3. VITAMIN D AND CALCIUM [Concomitant]
  4. METFORMIN HCL [Concomitant]
  5. ALBUTEROL SULFATE [Concomitant]
  6. ACTOS [Concomitant]
  7. ASPIRIN [Concomitant]
  8. DIOVAN [Concomitant]
  9. MELOXICAM [Concomitant]
  10. SIMVASTATIN [Concomitant]
  11. CYMBALTA [Concomitant]

REACTIONS (2)
  - ERECTILE DYSFUNCTION [None]
  - NASAL CONGESTION [None]
